FAERS Safety Report 15066293 (Version 1)
Quarter: 2018Q2

REPORT INFORMATION
  Report Type: Spontaneous
  Country: US (occurrence: US)
  Receive Date: 20180626
  Receipt Date: 20180626
  Transmission Date: 20180711
  Serious: No
  Sender: FDA-Public Use
  Company Number: US-GLAXOSMITHKLINE-US2018111490

PATIENT
  Sex: Female

DRUGS (4)
  1. DIGOXIN. [Concomitant]
     Active Substance: DIGOXIN
  2. VENTOLIN HFA [Suspect]
     Active Substance: ALBUTEROL SULFATE
     Indication: PRODUCT USED FOR UNKNOWN INDICATION
     Route: 055
  3. ASPIRIN. [Concomitant]
     Active Substance: ASPIRIN
  4. OXYCODONE [Concomitant]
     Active Substance: OXYCODONE

REACTIONS (1)
  - Wrong technique in product usage process [Unknown]
